FAERS Safety Report 7736141-0 (Version None)
Quarter: 2011Q3

REPORT INFORMATION
  Report Type: 
  Country: None (occurrence: None)
  Receive Date: 20110908
  Receipt Date: 20110905
  Transmission Date: 20111222
  Serious: Yes (Other)
  Sender: FDA-Public Use
  Company Number: BR-GENZYME-THYM-1002743

PATIENT
  Sex: Female
  Weight: 60 kg

DRUGS (1)
  1. THYMOGLOBULIN [Suspect]
     Indication: APLASTIC ANAEMIA
     Dosage: UNK
     Route: 042

REACTIONS (2)
  - RASH ERYTHEMATOUS [None]
  - SKIN REACTION [None]
